FAERS Safety Report 7171823-3 (Version None)
Quarter: 2010Q4

REPORT INFORMATION
  Report Type: 
  Country: None (occurrence: None)
  Receive Date: 20101217
  Receipt Date: 20100127
  Transmission Date: 20110411
  Serious: No
  Sender: FDA-Public Use
  Company Number: US-AMGEN-KDL389046

PATIENT

DRUGS (1)
  1. ENBREL [Suspect]
     Indication: ANKYLOSING SPONDYLITIS
     Dosage: 50 MG, QWK
     Route: 058
     Dates: start: 20090701

REACTIONS (5)
  - ANKYLOSING SPONDYLITIS [None]
  - HYPERAESTHESIA [None]
  - MUSCLE SPASMS [None]
  - MYALGIA [None]
  - VULVOVAGINAL MYCOTIC INFECTION [None]
